FAERS Safety Report 7229744-3 (Version None)
Quarter: 2011Q1

REPORT INFORMATION
  Report Type: 
  Country: None (occurrence: None)
  Receive Date: 20110117
  Receipt Date: 20101123
  Transmission Date: 20110831
  Serious: Yes (Hospitalization, Other)
  Sender: FDA-Public Use
  Company Number: US-PURDUE-USA-2010-0056258

PATIENT
  Sex: Female

DRUGS (1)
  1. OXYCONTIN [Suspect]
     Indication: NERVE COMPRESSION
     Dosage: UNK
     Dates: start: 20010101, end: 20020101

REACTIONS (8)
  - VOMITING [None]
  - DRUG WITHDRAWAL SYNDROME [None]
  - DYSSTASIA [None]
  - IMPAIRED WORK ABILITY [None]
  - DIARRHOEA [None]
  - ABASIA [None]
  - PAIN [None]
  - DETOXIFICATION [None]
